FAERS Safety Report 10969345 (Version 1)
Quarter: 2015Q1

REPORT INFORMATION
  Report Type: Spontaneous
  Country: US (occurrence: None)
  Receive Date: 20150226
  Receipt Date: 20150226
  Transmission Date: 20150721
  Serious: No
  Sender: FDA-Public Use
  Company Number: TPA2010A00726

PATIENT
  Age: 55 Year
  Sex: Male
  Weight: 97.52 kg

DRUGS (3)
  1. ULORIC [Suspect]
     Active Substance: FEBUXOSTAT
     Indication: GOUT
     Route: 048
     Dates: start: 200908, end: 201001
  2. FISH OIL (FISH OIL) [Concomitant]
     Active Substance: FISH OIL
  3. INDOMETHACIN (INDOMETHACIN) [Concomitant]
     Active Substance: INDOMETHACIN

REACTIONS (2)
  - Gout [None]
  - Condition aggravated [None]
